FAERS Safety Report 5541558-9 (Version None)
Quarter: 2007Q4

REPORT INFORMATION
  Report Type: 
  Country: None (occurrence: None)
  Receive Date: 20071210
  Receipt Date: 20071127
  Transmission Date: 20080405
  Serious: Yes (Death, Other)
  Sender: FDA-Public Use
  Company Number: PHBS2007JP20108

PATIENT
  Age: 56 Year
  Sex: Male

DRUGS (4)
  1. CYCLOSPORINE [Suspect]
     Indication: CORD BLOOD TRANSPLANT THERAPY
     Route: 065
  2. CYCLOPHOSPHAMIDE [Concomitant]
     Indication: BONE MARROW CONDITIONING REGIMEN
     Dosage: 60 MG/KG, QD
     Route: 042
  3. IRRADIATION [Concomitant]
     Dosage: 4 GY
  4. METHOTREXATE [Concomitant]

REACTIONS (10)
  - AMNESIA [None]
  - CONFUSIONAL STATE [None]
  - CONVULSION [None]
  - CYTOMEGALOVIRUS TEST POSITIVE [None]
  - ENCEPHALITIS HERPES [None]
  - HUMAN HERPES VIRUS 6 SEROLOGY POSITIVE [None]
  - LEUKAEMIA RECURRENT [None]
  - MECHANICAL VENTILATION [None]
  - RENAL FAILURE [None]
  - THROMBOCYTOPENIA [None]
